FAERS Safety Report 25471655 (Version 6)
Quarter: 2025Q3

REPORT INFORMATION
  Report Type: Report from Study
  Country: US (occurrence: US)
  Receive Date: 20250624
  Receipt Date: 20250906
  Transmission Date: 20251020
  Serious: Yes (Hospitalization, Other)
  Sender: UNITED THERAPEUTICS
  Company Number: US-UNITED THERAPEUTICS-UNT-2025-016847

PATIENT
  Sex: Male
  Weight: 76.644 kg

DRUGS (27)
  1. TREPROSTINIL SODIUM [Interacting]
     Active Substance: TREPROSTINIL SODIUM
     Indication: Pulmonary arterial hypertension
     Dosage: 18 ?G, QID
     Dates: start: 2025, end: 2025
  2. TREPROSTINIL SODIUM [Interacting]
     Active Substance: TREPROSTINIL SODIUM
     Indication: Pulmonary fibrosis
     Dosage: 24 ?G, QID
     Dates: start: 2025, end: 2025
  3. TREPROSTINIL SODIUM [Interacting]
     Active Substance: TREPROSTINIL SODIUM
     Dosage: 18 ?G, QID
     Dates: start: 2025, end: 2025
  4. TREPROSTINIL SODIUM [Interacting]
     Active Substance: TREPROSTINIL SODIUM
     Dosage: 30 ?G, QID
     Dates: start: 2025, end: 2025
  5. TREPROSTINIL SODIUM [Interacting]
     Active Substance: TREPROSTINIL SODIUM
  6. TREPROSTINIL SODIUM [Interacting]
     Active Substance: TREPROSTINIL SODIUM
     Dosage: 30 ?G, QID
     Dates: start: 2025, end: 2025
  7. TREPROSTINIL SODIUM [Interacting]
     Active Substance: TREPROSTINIL SODIUM
     Dosage: 42 ?G, QID
     Dates: start: 2025, end: 202508
  8. TREPROSTINIL SODIUM [Interacting]
     Active Substance: TREPROSTINIL SODIUM
  9. TREPROSTINIL SODIUM [Interacting]
     Active Substance: TREPROSTINIL SODIUM
  10. ADEMPAS [Interacting]
     Active Substance: RIOCIGUAT
     Indication: Pulmonary hypertension
     Dosage: 1.5 MG, TID
     Dates: end: 2025
  11. ADEMPAS [Interacting]
     Active Substance: RIOCIGUAT
     Dosage: 2 MG, TID
     Dates: start: 2025, end: 202506
  12. LASIX [Concomitant]
     Active Substance: FUROSEMIDE
     Indication: Oedema peripheral
     Dosage: 40 MG IN THE MORNING AND 20 MG IN THE AFTERNOON, BID
     Dates: start: 20250501
  13. ELIQUIS [Concomitant]
     Active Substance: APIXABAN
     Indication: Pulmonary embolism
  14. ALBUTEROL SULFATE [Concomitant]
     Active Substance: ALBUTEROL SULFATE
     Indication: Dyspnoea
     Dosage: 1-2 PUFFS [90 ?G PER ACTUATION], Q4H [AS NEEDED]
     Dates: start: 20241023
  15. ALBUTEROL SULFATE [Concomitant]
     Active Substance: ALBUTEROL SULFATE
     Indication: Wheezing
  16. OXYGEN [Concomitant]
     Active Substance: OXYGEN
     Indication: Product used for unknown indication
  17. OXYGEN [Concomitant]
     Active Substance: OXYGEN
  18. SPIRONOLACTONE AND HYDROCHLOROTHIAZIDE [Concomitant]
     Active Substance: HYDROCHLOROTHIAZIDE\SPIRONOLACTONE
     Indication: Product used for unknown indication
  19. JARDIANCE [Concomitant]
     Active Substance: EMPAGLIFLOZIN
     Indication: Product used for unknown indication
  20. TORSEMIDE [Concomitant]
     Active Substance: TORSEMIDE
     Indication: Product used for unknown indication
     Dosage: 20 MG, QD
  21. TORSEMIDE [Concomitant]
     Active Substance: TORSEMIDE
     Dosage: 40 MG, QD
  22. BREZTRI [Concomitant]
     Active Substance: BUDESONIDE\FORMOTEROL\GLYCOPYRROLATE
     Indication: Prophylaxis against bronchospasm
     Dosage: 2 PUFFS [160-9-4.8 ?G PER ACTUATION], BID
     Dates: start: 20250325
  23. PRILOSEC [Concomitant]
     Active Substance: OMEPRAZOLE MAGNESIUM
     Indication: Product used for unknown indication
     Dosage: 20 MG, QD
  24. ALDACTONE [Concomitant]
     Active Substance: SPIRONOLACTONE
     Indication: Oedema peripheral
     Dosage: 25 MG, QD
     Dates: start: 20250407
  25. OFEV [Concomitant]
     Active Substance: NINTEDANIB
     Indication: Idiopathic pulmonary fibrosis
     Dosage: 150 MG, Q12H
  26. OFEV [Concomitant]
     Active Substance: NINTEDANIB
     Dosage: 100 MG, Q12H
     Dates: start: 20250702
  27. COREG [Concomitant]
     Active Substance: CARVEDILOL
     Indication: Hypertension

REACTIONS (21)
  - Dyspnoea [Unknown]
  - Oxygen saturation decreased [Unknown]
  - Oedema [Recovering/Resolving]
  - Illness [Unknown]
  - Drug interaction [Unknown]
  - Right ventricular failure [Unknown]
  - Interstitial lung disease [Unknown]
  - Pneumonia [Unknown]
  - Ejection fraction decreased [Unknown]
  - Hypoxia [Unknown]
  - Oedema peripheral [Recovering/Resolving]
  - Blood sodium increased [Unknown]
  - Erectile dysfunction [Unknown]
  - Nasopharyngitis [Unknown]
  - Rales [Unknown]
  - Fatigue [Unknown]
  - Decreased activity [Unknown]
  - Poor quality sleep [Unknown]
  - Dyspnoea exertional [Unknown]
  - Cough [Recovered/Resolved]
  - Drug tolerance decreased [Unknown]

NARRATIVE: CASE EVENT DATE: 20250101
